FAERS Safety Report 23962172 (Version 1)
Quarter: 2024Q2

REPORT INFORMATION
  Report Type: Spontaneous
  Country: US (occurrence: None)
  Receive Date: 20240610
  Receipt Date: 20240610
  Transmission Date: 20240715
  Serious: Yes (Other)
  Sender: FDA-Public Use
  Company Number: None

PATIENT
  Age: 40 Year
  Sex: Male
  Weight: 69.4 kg

DRUGS (2)
  1. NEOSTIGMINE [Suspect]
     Active Substance: NEOSTIGMINE
     Dosage: 2 MG ONCE INTRAVENOUS BOLUS?
     Route: 040
     Dates: start: 20240603
  2. NEOSTIGMINE [Suspect]
     Active Substance: NEOSTIGMINE
     Indication: Intestinal pseudo-obstruction
     Dosage: 0.04 MG/ML CONTINUOUS 10 ML/H INTRAVENOUS DRIP?
     Route: 041

REACTIONS (6)
  - Diarrhoea [None]
  - Tachypnoea [None]
  - Hypoxia [None]
  - Pyrexia [None]
  - Mental status changes [None]
  - Drug ineffective [None]

NARRATIVE: CASE EVENT DATE: 20240603
